FAERS Safety Report 9369225 (Version 1)
Quarter: 2013Q2

REPORT INFORMATION
  Report Type: Spontaneous
  Country: US (occurrence: US)
  Receive Date: 20130626
  Receipt Date: 20130626
  Transmission Date: 20140414
  Serious: No
  Sender: FDA-Public Use
  Company Number: US-BIOGENIDEC-2013BI056904

PATIENT
  Sex: Male

DRUGS (2)
  1. TYSABRI [Suspect]
     Indication: MULTIPLE SCLEROSIS
     Route: 042
     Dates: start: 20110706
  2. AMPYRA [Concomitant]
     Indication: GAIT DISTURBANCE
     Dates: start: 201305

REACTIONS (3)
  - Fall [Recovered/Resolved]
  - Gait disturbance [Recovered/Resolved]
  - Balance disorder [Not Recovered/Not Resolved]
